FAERS Safety Report 21997154 (Version 1)
Quarter: 2023Q1

REPORT INFORMATION
  Report Type: Spontaneous
  Country: US (occurrence: US)
  Receive Date: 20230216
  Receipt Date: 20230216
  Transmission Date: 20230418
  Serious: Yes (Other)
  Sender: FDA-Public Use
  Company Number: US-STRIDES ARCOLAB LIMITED-2022SP007630

PATIENT
  Sex: Female

DRUGS (6)
  1. CARBOPLATIN [Suspect]
     Active Substance: CARBOPLATIN
     Indication: Brain stem glioma
     Dosage: UNK, CYCLICAL (CHEMOTHERAPY WITH TWO CYCLES)
     Route: 065
  2. CARBOPLATIN [Suspect]
     Active Substance: CARBOPLATIN
     Dosage: UNK, CYCLICAL (TWO CYCLES)
     Route: 065
  3. ETOPOSIDE [Suspect]
     Active Substance: ETOPOSIDE
     Indication: Brain stem glioma
     Dosage: UNK, CYCLICAL (CHEMOTHERAPY WITH TWO CYCLES)
     Route: 065
  4. ETOPOSIDE [Suspect]
     Active Substance: ETOPOSIDE
     Dosage: UNK, CYCLICAL (TWO CYCLES)
     Route: 065
  5. IMATINIB [Suspect]
     Active Substance: IMATINIB
     Indication: Brain stem glioma
     Dosage: UNK, CYCLICAL (TWO CYCLES)
     Route: 065
  6. IMATINIB [Suspect]
     Active Substance: IMATINIB
     Route: 065

REACTIONS (1)
  - Drug ineffective for unapproved indication [Unknown]
